FAERS Safety Report 6039090-1 (Version None)
Quarter: 2009Q1

REPORT INFORMATION
  Report Type: 
  Country: None (occurrence: None)
  Receive Date: 20090115
  Receipt Date: 20090108
  Transmission Date: 20090719
  Serious: Yes (Other)
  Sender: FDA-Public Use
  Company Number: US-PFIZER INC-2009153573

PATIENT
  Sex: Female
  Weight: 49.895 kg

DRUGS (5)
  1. LYRICA [Suspect]
     Indication: NEURALGIA
     Dosage: UNK
  2. OXYCONTIN [Concomitant]
  3. CYMBALTA [Concomitant]
  4. TYLENOL (CAPLET) [Concomitant]
  5. CELEBREX [Concomitant]

REACTIONS (5)
  - CONFUSIONAL STATE [None]
  - DISTURBANCE IN ATTENTION [None]
  - MALAISE [None]
  - OEDEMA PERIPHERAL [None]
  - VITREOUS DETACHMENT [None]
